FAERS Safety Report 17113517 (Version 1)
Quarter: 2019Q4

REPORT INFORMATION
  Report Type: Report from Study
  Country: GB (occurrence: GB)
  Receive Date: 20191205
  Receipt Date: 20191205
  Transmission Date: 20200122
  Serious: Yes (Hospitalization)
  Sender: FDA-Public Use
  Company Number: GB-EMD SERONO-9133209

PATIENT
  Sex: Female

DRUGS (1)
  1. REBIF [Suspect]
     Active Substance: INTERFERON BETA-1A
     Indication: MULTIPLE SCLEROSIS
     Dosage: REBIF 44MICROGRAMS/0.5ML (12MILLION UNITS) SOLUTION FOR INJECTION 1.5ML CARTRIDGES?STRENGTH/DOSE 36M
     Route: 058

REACTIONS (1)
  - Myocardial infarction [Unknown]
